FAERS Safety Report 8455933-6 (Version None)
Quarter: 2012Q2

REPORT INFORMATION
  Report Type: 
  Country: None (occurrence: None)
  Receive Date: 20120621
  Receipt Date: 20120619
  Transmission Date: 20120825
  Serious: Yes (Other)
  Sender: FDA-Public Use
  Company Number: PHHY2011JP47457

PATIENT
  Age: 32 Year
  Sex: Male

DRUGS (2)
  1. TACROLIMUS [Suspect]
     Indication: PROPHYLAXIS AGAINST GRAFT VERSUS HOST DISEASE
  2. CYCLOSPORINE [Suspect]
     Indication: PROPHYLAXIS AGAINST GRAFT VERSUS HOST DISEASE
     Dosage: 3 MG/KG, QD

REACTIONS (5)
  - POST TRANSPLANT DISTAL LIMB SYNDROME [None]
  - PAIN IN EXTREMITY [None]
  - ACUTE GRAFT VERSUS HOST DISEASE IN SKIN [None]
  - PRURITUS [None]
  - ACUTE GRAFT VERSUS HOST DISEASE IN INTESTINE [None]
